FAERS Safety Report 17454568 (Version 1)
Quarter: 2020Q1

REPORT INFORMATION
  Report Type: Spontaneous
  Country: US (occurrence: US)
  Receive Date: 20200224
  Receipt Date: 20200224
  Transmission Date: 20200409
  Serious: Yes (Hospitalization)
  Sender: FDA-Public Use
  Company Number: None

PATIENT
  Age: 56 Year
  Sex: Female

DRUGS (21)
  1. FENOFIBRATE. [Concomitant]
     Active Substance: FENOFIBRATE
  2. VITAMIN D [Concomitant]
     Active Substance: VITAMIN D NOS
  3. HUMIRA [Suspect]
     Active Substance: ADALIMUMAB
     Indication: PSORIASIS
     Dosage: ?          OTHER FREQUENCY:EVERY OTHER WEEK;?
     Route: 058
     Dates: start: 20191114
  4. DOXYCYCLINE. [Concomitant]
     Active Substance: DOXYCYCLINE
  5. ESTRADIOL. [Concomitant]
     Active Substance: ESTRADIOL
  6. LIDOCAINE. [Concomitant]
     Active Substance: LIDOCAINE
  7. METHOCARBAM [Concomitant]
     Active Substance: METHOCARBAMOL
  8. ONDANSETRON [Concomitant]
     Active Substance: ONDANSETRON
  9. PREDNISONE. [Concomitant]
     Active Substance: PREDNISONE
  10. ATORVASTATIN [Concomitant]
     Active Substance: ATORVASTATIN
  11. CEPHALEXIN. [Concomitant]
     Active Substance: CEPHALEXIN
  12. TIZANIDINE. [Concomitant]
     Active Substance: TIZANIDINE
  13. ALBUTEROL. [Concomitant]
     Active Substance: ALBUTEROL
  14. CETIRIZINE [Concomitant]
     Active Substance: CETIRIZINE HYDROCHLORIDE
  15. PROAIR HFA [Concomitant]
     Active Substance: ALBUTEROL SULFATE
  16. IRON 100 [Concomitant]
  17. LISINOPRIL AND HYDROCHLOROTHIAZIDE [Concomitant]
     Active Substance: HYDROCHLOROTHIAZIDE\LISINOPRIL
  18. OMEPRAZOLE. [Concomitant]
     Active Substance: OMEPRAZOLE
  19. ROPINIROLE. [Concomitant]
     Active Substance: ROPINIROLE
  20. SERTRALINE [Concomitant]
     Active Substance: SERTRALINE HYDROCHLORIDE
  21. OXYCODONE AND ACETAMINOPHEN [Concomitant]
     Active Substance: ACETAMINOPHEN\OXYCODONE HYDROCHLORIDE

REACTIONS (6)
  - Gallbladder disorder [None]
  - Abdominal discomfort [None]
  - Diverticulitis [None]
  - Pain [None]
  - Loss of personal independence in daily activities [None]
  - Cardiomegaly [None]

NARRATIVE: CASE EVENT DATE: 20200205
